FAERS Safety Report 8455299-1 (Version None)
Quarter: 2012Q2

REPORT INFORMATION
  Report Type: 
  Country: None (occurrence: None)
  Receive Date: 20120614
  Receipt Date: 20120530
  Transmission Date: 20120825
  Serious: Yes (Other)
  Sender: FDA-Public Use
  Company Number: GB-1192572

PATIENT
  Age: 60 Year
  Sex: Male

DRUGS (4)
  1. ISOPTO CARPINE [Suspect]
     Dosage: (TWICE DAILY OPHTHALMIC)
     Route: 047
  2. MAXIDEX [Suspect]
     Dosage: (QID OPHTHALMIC)
     Route: 047
  3. ISOPTO CARPINE [Suspect]
     Dosage: (QID OPHTHALMIC)
     Route: 047
  4. PILOCARPINE [Suspect]
     Dosage: (OPHTHALMIC)
     Route: 047

REACTIONS (6)
  - HEADACHE [None]
  - LENS EXTRACTION [None]
  - FLAT ANTERIOR CHAMBER OF EYE [None]
  - INTRAOCULAR PRESSURE INCREASED [None]
  - ANGLE CLOSURE GLAUCOMA [None]
  - POST PROCEDURAL COMPLICATION [None]
